FAERS Safety Report 15440947 (Version 1)
Quarter: 2018Q3

REPORT INFORMATION
  Report Type: Spontaneous
  Country: GB (occurrence: GB)
  Receive Date: 20180928
  Receipt Date: 20180928
  Transmission Date: 20181010
  Serious: Yes (Other)
  Sender: FDA-Public Use
  Company Number: GB-PFIZER INC-2018386014

PATIENT
  Age: 7 Decade
  Sex: Female

DRUGS (1)
  1. PREMIQUE LOW DOSE [Suspect]
     Active Substance: ESTROGENS, CONJUGATED\MEDROXYPROGESTERONE ACETATE

REACTIONS (3)
  - Suicidal ideation [Unknown]
  - Hyperhidrosis [Unknown]
  - Intentional product use issue [Unknown]
